FAERS Safety Report 7438110-7 (Version None)
Quarter: 2011Q2

REPORT INFORMATION
  Report Type: 
  Country: None (occurrence: None)
  Receive Date: 20110426
  Receipt Date: 20110419
  Transmission Date: 20111010
  Serious: Yes (Hospitalization)
  Sender: FDA-Public Use
  Company Number: NL-MEDIMMUNE-MEDI-0013118

PATIENT
  Sex: Female
  Weight: 7.09 kg

DRUGS (2)
  1. PROPRANOLOL HYDROCHLORIDE [Concomitant]
  2. SYNAGIS [Suspect]
     Route: 030
     Dates: start: 20100902, end: 20110316

REACTIONS (2)
  - HAEMORRHAGE [None]
  - HAEMANGIOMA [None]
